FAERS Safety Report 20433032 (Version 1)
Quarter: 2022Q1

REPORT INFORMATION
  Report Type: Spontaneous
  Country: US (occurrence: US)
  Receive Date: 20220205
  Receipt Date: 20220205
  Transmission Date: 20220423
  Serious: No
  Sender: FDA-Public Use
  Company Number: US-SANOFI-00946668

PATIENT

DRUGS (6)
  1. LANTUS [Suspect]
     Active Substance: INSULIN GLARGINE
  2. TOUJEO [Suspect]
     Active Substance: INSULIN GLARGINE
  3. SOLIQUA 100/33 [Suspect]
     Active Substance: INSULIN GLARGINE\LIXISENATIDE
  4. PRALUENT [Suspect]
     Active Substance: ALIROCUMAB
  5. LANTUS SOLOSTAR [Suspect]
     Active Substance: INSULIN GLARGINE
  6. TOUJEO MAX [Suspect]
     Active Substance: INSULIN GLARGINE

REACTIONS (1)
  - Product storage error [Unknown]
